FAERS Safety Report 23488719 (Version 1)
Quarter: 2024Q1

REPORT INFORMATION
  Report Type: Spontaneous
  Country: US (occurrence: US)
  Receive Date: 20240206
  Receipt Date: 20240206
  Transmission Date: 20240410
  Serious: No
  Sender: FDA-Public Use
  Company Number: US-PFIZER INC-PV202400013831

PATIENT
  Age: 65 Year
  Sex: Female
  Weight: 58 kg

DRUGS (3)
  1. PAXLOVID [Suspect]
     Active Substance: NIRMATRELVIR\RITONAVIR
     Indication: COVID-19 treatment
     Dosage: UNK, DAILY
     Dates: start: 20220606
  2. MODERNA COVID-19 VACCINE [Suspect]
     Active Substance: ELASOMERAN
     Indication: COVID-19 prophylaxis
     Dosage: 1 DF
     Dates: start: 20210318
  3. MODERNA COVID-19 VACCINE [Suspect]
     Active Substance: ELASOMERAN
     Dosage: 1 DF
     Dates: start: 20210415

REACTIONS (4)
  - COVID-19 [Unknown]
  - Drug ineffective [Unknown]
  - Palpitations [Recovered/Resolved]
  - Dizziness [Recovered/Resolved]
